FAERS Safety Report 4949136-7 (Version None)
Quarter: 2006Q1

REPORT INFORMATION
  Report Type: 
  Country: None (occurrence: None)
  Receive Date: 20060321
  Receipt Date: 20060314
  Transmission Date: 20060701
  Serious: Yes (Hospitalization, Other)
  Sender: FDA-Public Use
  Company Number: US-JNJFOC-20051006188

PATIENT
  Sex: Female
  Weight: 51.3 kg

DRUGS (4)
  1. ORTHO TRI-CYCLEN LO [Suspect]
     Route: 048
     Dates: start: 20050925
  2. EXTRA STRENGTH TYLENOL [Suspect]
     Indication: SLEEP DISORDER THERAPY
     Route: 048
     Dates: start: 20051019
  3. EXTRA STRENGTH TYLENOL [Suspect]
     Route: 048
     Dates: start: 20051019
  4. ALBUTEROL [Concomitant]
     Indication: ASTHMA

REACTIONS (4)
  - DEPRESSION [None]
  - EMOTIONAL DISORDER [None]
  - INTENTIONAL OVERDOSE [None]
  - OFF LABEL USE [None]
